FAERS Safety Report 18278038 (Version 1)
Quarter: 2020Q3

REPORT INFORMATION
  Report Type: Spontaneous
  Country: US (occurrence: US)
  Receive Date: 20200917
  Receipt Date: 20200917
  Transmission Date: 20201103
  Serious: No
  Sender: FDA-Public Use
  Company Number: US-CIRCASSIA PHARMACEUTICALS INC-2019US012735

PATIENT
  Sex: Female
  Weight: 38.6 kg

DRUGS (1)
  1. TUDORZA PRESSAIR [Suspect]
     Active Substance: ACLIDINIUM BROMIDE
     Indication: CHRONIC OBSTRUCTIVE PULMONARY DISEASE
     Dosage: 1 DF, BID
     Route: 055

REACTIONS (7)
  - Colitis ulcerative [Unknown]
  - Wrong technique in device usage process [Unknown]
  - Coronary artery disease [Unknown]
  - Device malfunction [Unknown]
  - Illness [Unknown]
  - Fatigue [Unknown]
  - Intentional product misuse [Unknown]
